FAERS Safety Report 9233478 (Version 1)
Quarter: 2013Q2

REPORT INFORMATION
  Report Type: Spontaneous
  Country: US (occurrence: US)
  Receive Date: 20130416
  Receipt Date: 20130416
  Transmission Date: 20140414
  Serious: No
  Sender: FDA-Public Use
  Company Number: US-ASTRAZENECA-2013SE18325

PATIENT
  Age: 62 Year
  Sex: Female
  Weight: 130 kg

DRUGS (4)
  1. NEXIUM [Suspect]
     Indication: HIATUS HERNIA
     Route: 048
  2. PRILOSEC [Suspect]
     Route: 048
  3. ATENOLOL [Suspect]
     Indication: HYPERTENSION
     Route: 048
     Dates: start: 2003
  4. HYOSCYAMINE [Concomitant]
     Indication: IRRITABLE BOWEL SYNDROME

REACTIONS (3)
  - Dyspepsia [Unknown]
  - Abdominal pain upper [Unknown]
  - Off label use [Not Recovered/Not Resolved]
